FAERS Safety Report 15111665 (Version 1)
Quarter: 2018Q3

REPORT INFORMATION
  Report Type: Report from Study
  Country: DE (occurrence: DE)
  Receive Date: 20180705
  Receipt Date: 20180705
  Transmission Date: 20181010
  Serious: Yes (Congenital Anomaly)
  Sender: FDA-Public Use
  Company Number: DE-TEVA-2018-DE-919879

PATIENT
  Sex: Male

DRUGS (6)
  1. CLOPIDOGREL [Concomitant]
     Active Substance: CLOPIDOGREL BISULFATE
     Dosage: EXPOSURE DURATION: 0?8 WEEKS
     Route: 064
  2. ACETYLSALICYLIC ACID [Concomitant]
     Active Substance: ASPIRIN
     Route: 064
  3. DIHYDRALAZINE [Concomitant]
     Active Substance: DIHYDRALAZINE
     Dosage: EXPOSURE DURATION: 8+1?38 WEEKS
     Route: 064
  4. METOPROLOL. [Concomitant]
     Active Substance: METOPROLOL
     Dosage: EXPOSURE DURATION: 8+1?38 WEEKS
     Route: 064
  5. RAMIPRIL. [Suspect]
     Active Substance: RAMIPRIL
     Indication: HYPERTENSION
     Dosage: EXPOSURE DURATION: 0?8 WEEKS
     Route: 064
  6. PRAVASTATIN. [Concomitant]
     Active Substance: PRAVASTATIN
     Dosage: EXPOSURE DURATION: 0?8 WEEKS
     Route: 064

REACTIONS (2)
  - Foetal exposure during pregnancy [Unknown]
  - Shone complex [Unknown]
